FAERS Safety Report 9879305 (Version 1)
Quarter: 2014Q1

REPORT INFORMATION
  Report Type: Spontaneous
  Country: TR (occurrence: TR)
  Receive Date: 20140206
  Receipt Date: 20140206
  Transmission Date: 20141002
  Serious: Yes (Other)
  Sender: FDA-Public Use
  Company Number: PHHY2014TR013067

PATIENT
  Age: 51 Year
  Sex: Male

DRUGS (11)
  1. CICLOSPORIN [Suspect]
     Indication: IMMUNOSUPPRESSANT DRUG THERAPY
  2. CORTICOSTEROIDS [Suspect]
     Dosage: 5 MG,PER DAY
  3. CORTICOSTEROIDS [Suspect]
     Dosage: 20 MG, PER DAY
  4. MYCOPHENOLATE MOFETIL [Suspect]
  5. EVEROLIMUS [Suspect]
  6. BASILIXIMAB [Concomitant]
     Indication: IMMUNE TOLERANCE INDUCTION
     Dosage: 20 MG, UNK
  7. CEPHAZOLIN SODIUM [Concomitant]
     Indication: ANTIBIOTIC PROPHYLAXIS
     Dosage: 4 G, PER DAY
     Route: 042
  8. TRIMETHOPRIM SULFAMETHOXAZOLE [Concomitant]
     Indication: ANTIFUNGAL PROPHYLAXIS
     Dosage: 960 MG, PER DAY
  9. TRIMETHOPRIM SULFAMETHOXAZOLE [Concomitant]
     Dosage: 160 TO 800 MG PER DAY FOR 5 WEEKS
  10. VALACYCLOVIR HYDROCHLORIDE [Concomitant]
     Indication: ANTIVIRAL PROPHYLAXIS
     Dosage: 1000 MG, PER DAY
  11. NYSTATIN [Concomitant]
     Indication: ANTIFUNGAL PROPHYLAXIS
     Route: 048

REACTIONS (6)
  - Renal impairment [Recovered/Resolved]
  - Toxoplasmosis [Unknown]
  - Retinitis [Recovered/Resolved]
  - Vitreous floaters [Recovered/Resolved]
  - Visual acuity reduced [Recovered/Resolved]
  - Chorioretinal atrophy [Unknown]
